FAERS Safety Report 4397725-3 (Version None)
Quarter: 2004Q3

REPORT INFORMATION
  Report Type: 
  Country: None (occurrence: None)
  Receive Date: 20040713
  Receipt Date: 20040707
  Transmission Date: 20050211
  Serious: Yes (Hospitalization, Other)
  Sender: FDA-Public Use
  Company Number: KII-2001-0000534

PATIENT
  Sex: Female

DRUGS (1)
  1. OXYCONTIN [Suspect]
     Dosage: 20 MG, Q12H

REACTIONS (4)
  - MEDICATION ERROR [None]
  - OVERDOSE [None]
  - SELF-MEDICATION [None]
  - TREATMENT NONCOMPLIANCE [None]
